FAERS Safety Report 6793349-9 (Version None)
Quarter: 2010Q2

REPORT INFORMATION
  Report Type: 
  Country: None (occurrence: None)
  Receive Date: 20100624
  Receipt Date: 20100122
  Transmission Date: 20101027
  Serious: Yes (Other)
  Sender: FDA-Public Use
  Company Number: US-MYLANLABS-2009S1021575

PATIENT
  Age: 34 Year
  Sex: Female
  Weight: 61.3 kg

DRUGS (21)
  1. CLOZAPINE [Suspect]
     Indication: SCHIZOAFFECTIVE DISORDER
     Dates: start: 20091120, end: 20091120
  2. CLOZAPINE [Suspect]
     Dates: start: 20091121, end: 20091121
  3. CLOZAPINE [Suspect]
     Dates: start: 20091122, end: 20091122
  4. CLOZAPINE [Suspect]
     Dates: start: 20091123, end: 20091123
  5. CLOZAPINE [Suspect]
     Dates: start: 20091124, end: 20091124
  6. CLOZAPINE [Suspect]
     Dates: start: 20091125, end: 20091126
  7. CLOZAPINE [Suspect]
     Dates: start: 20091127, end: 20091128
  8. CLOZAPINE [Suspect]
     Dates: start: 20091129, end: 20091130
  9. CLOZAPINE [Suspect]
     Dates: start: 20091201, end: 20091203
  10. HEPARIN [Concomitant]
     Route: 058
     Dates: start: 20091205
  11. DIVALPROEX SODIUM EXTENDED RELEASE [Concomitant]
     Dates: start: 20091023, end: 20091212
  12. PROPRANOLOL [Concomitant]
     Dates: start: 20091125, end: 20091212
  13. CLONAZEPAM [Concomitant]
     Dates: start: 20091111, end: 20091212
  14. LORAZEPAM [Concomitant]
     Dates: start: 20091023, end: 20091212
  15. OLANZAPINE [Concomitant]
     Dates: start: 20091023, end: 20091212
  16. ACETAMINOPHEN [Concomitant]
     Dates: start: 20091030, end: 20091212
  17. DOCUSATE [Concomitant]
     Dates: start: 20091117, end: 20091212
  18. BENZTROPINE MESYLATE [Concomitant]
     Dates: start: 20091023, end: 20091212
  19. FLUPHENAZINE [Concomitant]
     Dates: start: 20091023, end: 20091128
  20. HALOPERIDOL [Concomitant]
     Dates: start: 20091023, end: 20091212
  21. FLUPHENAZINE DECANOATE [Concomitant]
     Dates: start: 20091028, end: 20091028

REACTIONS (2)
  - PANCREATITIS [None]
  - PYREXIA [None]
